FAERS Safety Report 8120668-6 (Version None)
Quarter: 2012Q1

REPORT INFORMATION
  Report Type: 
  Country: None (occurrence: None)
  Receive Date: 20120207
  Receipt Date: 20100826
  Transmission Date: 20120608
  Serious: Yes (Hospitalization, Other)
  Sender: FDA-Public Use
  Company Number: GB-ROCHE-723625

PATIENT
  Age: 67 Year
  Sex: Male

DRUGS (3)
  1. CHEMOTHERAPY NOS [Suspect]
     Route: 065
  2. AVASTIN [Suspect]
     Indication: GASTROINTESTINAL CARCINOMA
     Route: 065
  3. CHEMOTHERAPY NOS [Suspect]
     Indication: GASTROINTESTINAL CARCINOMA
     Route: 065

REACTIONS (4)
  - TERMINAL STATE [None]
  - SURGERY [None]
  - DRUG RESISTANCE [None]
  - GASTROINTESTINAL CARCINOMA [None]
